FAERS Safety Report 18970176 (Version 1)
Quarter: 2021Q1

REPORT INFORMATION
  Report Type: Spontaneous
  Country: GB (occurrence: GB)
  Receive Date: 20210304
  Receipt Date: 20210304
  Transmission Date: 20210420
  Serious: Yes (Other)
  Sender: FDA-Public Use
  Company Number: GB-PFIZER INC-2021205387

PATIENT
  Age: 66 Year
  Sex: Male

DRUGS (21)
  1. SILDENAFIL CITRATE. [Suspect]
     Active Substance: SILDENAFIL CITRATE
  2. OMEPRAZOLE. [Suspect]
     Active Substance: OMEPRAZOLE
  3. PIROXICAM. [Suspect]
     Active Substance: PIROXICAM
  4. TRAMADOL HCL [Suspect]
     Active Substance: TRAMADOL HYDROCHLORIDE
     Dates: start: 20210223
  5. SIMVASTATIN. [Suspect]
     Active Substance: SIMVASTATIN
  6. AMITRIPTYLINE [Suspect]
     Active Substance: AMITRIPTYLINE
  7. AMLODIPINE BESILATE [Suspect]
     Active Substance: AMLODIPINE BESYLATE
  8. ALENDRONIC ACID [Suspect]
     Active Substance: ALENDRONIC ACID
  9. CITALOPRAM [Suspect]
     Active Substance: CITALOPRAM HYDROBROMIDE
  10. RAMIPRIL. [Suspect]
     Active Substance: RAMIPRIL
     Dates: start: 20210223
  11. ZOLPIDEM TARTRATE. [Suspect]
     Active Substance: ZOLPIDEM TARTRATE
  12. ALLOPURINOL. [Suspect]
     Active Substance: ALLOPURINOL
  13. RIVAROXABAN [Suspect]
     Active Substance: RIVAROXABAN
  14. BISOPROLOL FUMARATE. [Suspect]
     Active Substance: BISOPROLOL FUMARATE
  15. FUROSEMIDE. [Suspect]
     Active Substance: FUROSEMIDE
  16. PREGABALIN. [Suspect]
     Active Substance: PREGABALIN
  17. PARACETAMOL [Suspect]
     Active Substance: ACETAMINOPHEN
     Dates: start: 20210223
  18. TAMSULOSIN HYDROCHLORIDE. [Suspect]
     Active Substance: TAMSULOSIN HYDROCHLORIDE
  19. ADCAL D3 [Suspect]
     Active Substance: CALCIUM CARBONATE\CHOLECALCIFEROL
  20. FOLIC ACID. [Suspect]
     Active Substance: FOLIC ACID
  21. HYPROMELLOSE [Suspect]
     Active Substance: HYPROMELLOSES
     Dates: start: 20210223

REACTIONS (1)
  - Pancytopenia [Unknown]
